FAERS Safety Report 22002178 (Version 1)
Quarter: 2023Q1

REPORT INFORMATION
  Report Type: Spontaneous
  Country: US (occurrence: US)
  Receive Date: 20230217
  Receipt Date: 20230217
  Transmission Date: 20230418
  Serious: Yes (Other)
  Sender: FDA-Public Use
  Company Number: US-SLATE RUN PHARMACEUTICALS-23US001499

PATIENT

DRUGS (2)
  1. VANCOMYCIN HYDROCHLORIDE [Suspect]
     Active Substance: VANCOMYCIN HYDROCHLORIDE
     Indication: Amniotic cavity infection
     Dosage: UNK
  2. GENTAMICIN [Concomitant]
     Active Substance: GENTAMICIN
     Indication: Amniotic cavity infection

REACTIONS (3)
  - Foetal death [Unknown]
  - Bacteraemia [Recovered/Resolved]
  - Foetal exposure during delivery [Unknown]
